FAERS Safety Report 11068472 (Version 1)
Quarter: 2015Q2

REPORT INFORMATION
  Report Type: Spontaneous
  Country: SE (occurrence: SE)
  Receive Date: 20150427
  Receipt Date: 20150427
  Transmission Date: 20150821
  Serious: Yes (Hospitalization)
  Sender: FDA-Public Use
  Company Number: SE-TEVA-556754ISR

PATIENT
  Age: 41 Year
  Sex: Male

DRUGS (1)
  1. ENALAPRIL 10 MILLIGRAM TABLETT PER ORAL [Suspect]
     Active Substance: ENALAPRIL
     Route: 048

REACTIONS (2)
  - Tachycardia [Recovered/Resolved]
  - Toxicity to various agents [Recovered/Resolved]
